FAERS Safety Report 12482911 (Version 1)
Quarter: 2016Q2

REPORT INFORMATION
  Report Type: Spontaneous
  Country: JP (occurrence: JP)
  Receive Date: 20160620
  Receipt Date: 20160620
  Transmission Date: 20160815
  Serious: Yes (Hospitalization)
  Sender: FDA-Public Use
  Company Number: JP-009507513-1606JPN009210

PATIENT
  Sex: Female
  Weight: 34 kg

DRUGS (3)
  1. THIAMINE. [Concomitant]
     Active Substance: THIAMINE
     Dosage: FORMULATION POR. DAILY DOSAGE UNKNOWN
     Route: 048
  2. MENESIT TABLETS - 100 [Suspect]
     Active Substance: CARBIDOPA\LEVODOPA
     Dosage: 100 MG, TID
     Route: 048
  3. MENESIT TABLETS - 100 [Suspect]
     Active Substance: CARBIDOPA\LEVODOPA
     Indication: PARKINSON^S DISEASE
     Dosage: DAILY DOSAGE UNKNOWN
     Route: 048

REACTIONS (5)
  - Drug effect incomplete [Unknown]
  - Tardive dyskinesia [Recovering/Resolving]
  - Mental status changes [Unknown]
  - Panic disorder [Unknown]
  - Dyskinesia [Recovering/Resolving]
